FAERS Safety Report 4690723-1 (Version None)
Quarter: 2005Q2

REPORT INFORMATION
  Report Type: 
  Country: None (occurrence: None)
  Receive Date: 20050615
  Receipt Date: 20041209
  Transmission Date: 20051028
  Serious: Yes (Disabling)
  Sender: FDA-Public Use
  Company Number: DE-MERCK-0412DEU00122

PATIENT
  Age: 52 Year
  Sex: Male
  Weight: 99 kg

DRUGS (2)
  1. VIOXX [Suspect]
     Route: 048
     Dates: start: 20031127, end: 20040613
  2. DICLOFENAC SODIUM [Concomitant]
     Route: 065
     Dates: start: 20000101

REACTIONS (5)
  - EPISTAXIS [None]
  - OEDEMA PERIPHERAL [None]
  - OPTIC ISCHAEMIC NEUROPATHY [None]
  - SCOTOMA [None]
  - VISION BLURRED [None]
